FAERS Safety Report 4297211-5 (Version None)
Quarter: 2004Q1

REPORT INFORMATION
  Report Type: 
  Country: None (occurrence: None)
  Receive Date: 20040218
  Receipt Date: 20031111
  Transmission Date: 20041129
  Serious: Yes (Death, Hospitalization)
  Sender: FDA-Public Use
  Company Number: 200321641GDDC

PATIENT
  Age: 41 Year
  Sex: Female
  Weight: 49 kg

DRUGS (6)
  1. LEFLUNOMIDE [Suspect]
     Indication: RHEUMATOID ARTHRITIS
     Route: 048
     Dates: start: 20031010, end: 20031106
  2. PREDNISONE [Concomitant]
     Indication: RHEUMATOID ARTHRITIS
     Route: 048
     Dates: start: 20030129
  3. FERROUS FUMARATE [Concomitant]
     Route: 048
     Dates: start: 20030129
  4. FOLATE [Concomitant]
     Route: 048
     Dates: start: 20030129
  5. RANITIDINE [Concomitant]
     Indication: GASTRITIS
     Route: 048
     Dates: start: 20030129
  6. VITAMIN B COMPLEX CAP [Concomitant]
     Dates: start: 20030129

REACTIONS (20)
  - ACTIVATED PARTIAL THROMBOPLASTIN TIME PROLONGED [None]
  - ALANINE AMINOTRANSFERASE INCREASED [None]
  - ASPARTATE AMINOTRANSFERASE INCREASED [None]
  - BLOOD ALKALINE PHOSPHATASE INCREASED [None]
  - BLOOD BILIRUBIN INCREASED [None]
  - BLOOD CREATININE INCREASED [None]
  - BLOOD PH DECREASED [None]
  - BLOOD POTASSIUM DECREASED [None]
  - BLOOD SODIUM DECREASED [None]
  - BLOOD UREA INCREASED [None]
  - C-REACTIVE PROTEIN INCREASED [None]
  - HAEMATOCRIT DECREASED [None]
  - HAEMOGLOBIN DECREASED [None]
  - INFLUENZA LIKE ILLNESS [None]
  - LIVER FUNCTION TEST ABNORMAL [None]
  - PLATELET COUNT DECREASED [None]
  - PROTHROMBIN TIME PROLONGED [None]
  - RASH MACULO-PAPULAR [None]
  - RESPIRATORY DISORDER [None]
  - SEPSIS [None]
